FAERS Safety Report 7570870-7 (Version None)
Quarter: 2011Q2

REPORT INFORMATION
  Report Type: 
  Country: None (occurrence: None)
  Receive Date: 20110624
  Receipt Date: 20110615
  Transmission Date: 20111010
  Serious: Yes (Disabling, Other)
  Sender: FDA-Public Use
  Company Number: US-PFIZER INC-2011123019

PATIENT
  Sex: Female
  Weight: 63.492 kg

DRUGS (1)
  1. PRISTIQ [Suspect]
     Indication: DEPRESSION
     Dosage: UNK, 2X/DAY
     Route: 048
     Dates: start: 20110101

REACTIONS (6)
  - DIZZINESS [None]
  - FALL [None]
  - SLEEP DISORDER [None]
  - LOSS OF CONSCIOUSNESS [None]
  - CONSTIPATION [None]
  - ANXIETY [None]
